FAERS Safety Report 19796880 (Version 1)
Quarter: 2021Q3

REPORT INFORMATION
  Report Type: Spontaneous
  Country: US (occurrence: US)
  Receive Date: 20210907
  Receipt Date: 20210907
  Transmission Date: 20211014
  Serious: Yes (Other)
  Sender: FDA-Public Use
  Company Number: US-ASTRAZENECA-2021A705015

PATIENT
  Sex: Female
  Weight: 108.9 kg

DRUGS (15)
  1. SPIRIVA [Concomitant]
     Active Substance: TIOTROPIUM BROMIDE MONOHYDRATE
     Dosage: INHALER DAILY
     Route: 065
  2. BYDUREON BCISE [Suspect]
     Active Substance: EXENATIDE
     Indication: TYPE 2 DIABETES MELLITUS
     Dosage: UNKNOWN, ONCE A WEEK
     Route: 065
     Dates: start: 2021
  3. METFORMIN [Concomitant]
     Active Substance: METFORMIN HYDROCHLORIDE
     Dosage: 1000MG BID
     Route: 065
  4. METOPROLOL SUCCINATE. [Concomitant]
     Active Substance: METOPROLOL SUCCINATE
     Dosage: 25G 3 PILLS DAILY
     Route: 065
  5. ISOSORBIDE. [Concomitant]
     Active Substance: ISOSORBIDE
     Dosage: DAILY
     Route: 065
  6. NOVOLOG [Concomitant]
     Active Substance: INSULIN ASPART
     Route: 065
  7. BYDUREON BCISE [Suspect]
     Active Substance: EXENATIDE
     Indication: TYPE 2 DIABETES MELLITUS
     Dosage: UNKNOWN, ONCE A WEEK
     Route: 065
     Dates: start: 2017, end: 2019
  8. TUJEO [Concomitant]
     Dosage: 30 UNITS DAILY AT NIGHT
     Route: 065
  9. PRAVASTATIN. [Concomitant]
     Active Substance: PRAVASTATIN
     Dosage: 40MG DAILY
     Route: 065
  10. ASA [Concomitant]
     Active Substance: ASPIRIN
     Route: 065
  11. POTASSIUM CHLORIDE. [Concomitant]
     Active Substance: POTASSIUM CHLORIDE
     Dosage: 20MG MON WED AND FRI
     Route: 065
  12. FUROSEMIDE. [Concomitant]
     Active Substance: FUROSEMIDE
     Dosage: 20MG MON WED FRI AND 2 PILLS OTHER DAYS DAILY
     Route: 065
  13. BRILINTA [Suspect]
     Active Substance: TICAGRELOR
     Indication: STENT PLACEMENT
     Route: 048
     Dates: start: 202005
  14. PANTOPRAZOLE [Concomitant]
     Active Substance: PANTOPRAZOLE
     Dosage: 40MG DAILY
     Route: 065
  15. DILTIAZEM. [Concomitant]
     Active Substance: DILTIAZEM
     Dosage: DAILY
     Route: 065

REACTIONS (6)
  - Device leakage [Unknown]
  - Goitre [Unknown]
  - Off label use [Unknown]
  - Wrong technique in device usage process [Unknown]
  - Lung neoplasm malignant [Unknown]
  - Incorrect dose administered by device [Unknown]
